FAERS Safety Report 23079917 (Version 1)
Quarter: 2023Q4

REPORT INFORMATION
  Report Type: Spontaneous
  Country: KR (occurrence: KR)
  Receive Date: 20231018
  Receipt Date: 20231018
  Transmission Date: 20240109
  Serious: Yes (Hospitalization)
  Sender: FDA-Public Use
  Company Number: KR-MYLANLABS-2023M1109186

PATIENT
  Sex: Male

DRUGS (1)
  1. LIPITOR [Suspect]
     Active Substance: ATORVASTATIN CALCIUM
     Indication: Angina pectoris
     Dosage: UNK
     Route: 048

REACTIONS (2)
  - Movement disorder [Not Recovered/Not Resolved]
  - Myalgia [Not Recovered/Not Resolved]
